FAERS Safety Report 20880598 (Version 1)
Quarter: 2022Q2

REPORT INFORMATION
  Report Type: Report from Study
  Country: US (occurrence: US)
  Receive Date: 20220526
  Receipt Date: 20220526
  Transmission Date: 20220720
  Serious: Yes (Other)
  Sender: FDA-Public Use
  Company Number: US-JNJFOC-20220535488

PATIENT

DRUGS (55)
  1. CONCERTA [Suspect]
     Active Substance: METHYLPHENIDATE HYDROCHLORIDE
     Indication: Attention deficit hyperactivity disorder
     Route: 065
  2. RISPERDAL [Interacting]
     Active Substance: RISPERIDONE
     Indication: Disturbance in social behaviour
     Route: 065
  3. RISPERDAL [Interacting]
     Active Substance: RISPERIDONE
     Indication: Affective disorder
  4. RISPERDAL [Interacting]
     Active Substance: RISPERIDONE
     Indication: Tourette^s disorder
  5. RISPERDAL [Interacting]
     Active Substance: RISPERIDONE
     Indication: Irritability
  6. RISPERDAL [Interacting]
     Active Substance: RISPERIDONE
     Indication: Autism spectrum disorder
  7. RISPERDAL [Interacting]
     Active Substance: RISPERIDONE
     Indication: Attention deficit hyperactivity disorder
  8. RISPERDAL [Interacting]
     Active Substance: RISPERIDONE
     Indication: Sleep disorder
  9. INVEGA [Interacting]
     Active Substance: PALIPERIDONE
     Indication: Disturbance in social behaviour
     Route: 065
  10. INVEGA [Interacting]
     Active Substance: PALIPERIDONE
     Indication: Affective disorder
  11. INVEGA [Interacting]
     Active Substance: PALIPERIDONE
     Indication: Tourette^s disorder
  12. INVEGA [Interacting]
     Active Substance: PALIPERIDONE
     Indication: Irritability
  13. INVEGA [Interacting]
     Active Substance: PALIPERIDONE
     Indication: Autism spectrum disorder
  14. INVEGA [Interacting]
     Active Substance: PALIPERIDONE
     Indication: Attention deficit hyperactivity disorder
  15. INVEGA [Interacting]
     Active Substance: PALIPERIDONE
     Indication: Sleep disorder
  16. ARIPIPRAZOLE [Interacting]
     Active Substance: ARIPIPRAZOLE
     Indication: Disturbance in social behaviour
  17. ARIPIPRAZOLE [Interacting]
     Active Substance: ARIPIPRAZOLE
     Indication: Affective disorder
  18. ARIPIPRAZOLE [Interacting]
     Active Substance: ARIPIPRAZOLE
     Indication: Tourette^s disorder
  19. ARIPIPRAZOLE [Interacting]
     Active Substance: ARIPIPRAZOLE
     Indication: Irritability
  20. ARIPIPRAZOLE [Interacting]
     Active Substance: ARIPIPRAZOLE
     Indication: Autism spectrum disorder
  21. ARIPIPRAZOLE [Interacting]
     Active Substance: ARIPIPRAZOLE
     Indication: Attention deficit hyperactivity disorder
  22. ARIPIPRAZOLE [Interacting]
     Active Substance: ARIPIPRAZOLE
     Indication: Sleep disorder
  23. OLANZAPINE [Interacting]
     Active Substance: OLANZAPINE
     Indication: Disturbance in social behaviour
  24. OLANZAPINE [Interacting]
     Active Substance: OLANZAPINE
     Indication: Affective disorder
  25. OLANZAPINE [Interacting]
     Active Substance: OLANZAPINE
     Indication: Tourette^s disorder
  26. OLANZAPINE [Interacting]
     Active Substance: OLANZAPINE
     Indication: Irritability
  27. OLANZAPINE [Interacting]
     Active Substance: OLANZAPINE
     Indication: Autism spectrum disorder
  28. OLANZAPINE [Interacting]
     Active Substance: OLANZAPINE
     Indication: Attention deficit hyperactivity disorder
  29. OLANZAPINE [Interacting]
     Active Substance: OLANZAPINE
     Indication: Sleep disorder
  30. QUETIAPINE [Interacting]
     Active Substance: QUETIAPINE
     Indication: Disturbance in social behaviour
  31. QUETIAPINE [Interacting]
     Active Substance: QUETIAPINE
     Indication: Affective disorder
  32. QUETIAPINE [Interacting]
     Active Substance: QUETIAPINE
     Indication: Tourette^s disorder
  33. QUETIAPINE [Interacting]
     Active Substance: QUETIAPINE
     Indication: Irritability
  34. QUETIAPINE [Interacting]
     Active Substance: QUETIAPINE
     Indication: Autism spectrum disorder
  35. QUETIAPINE [Interacting]
     Active Substance: QUETIAPINE
     Indication: Attention deficit hyperactivity disorder
  36. QUETIAPINE [Interacting]
     Active Substance: QUETIAPINE
     Indication: Sleep disorder
  37. ZIPRASIDONE [Interacting]
     Active Substance: ZIPRASIDONE
     Indication: Disturbance in social behaviour
  38. ZIPRASIDONE [Interacting]
     Active Substance: ZIPRASIDONE
     Indication: Affective disorder
  39. ZIPRASIDONE [Interacting]
     Active Substance: ZIPRASIDONE
     Indication: Tourette^s disorder
  40. ZIPRASIDONE [Interacting]
     Active Substance: ZIPRASIDONE
     Indication: Irritability
  41. ZIPRASIDONE [Interacting]
     Active Substance: ZIPRASIDONE
     Indication: Autism spectrum disorder
  42. ZIPRASIDONE [Interacting]
     Active Substance: ZIPRASIDONE
     Indication: Attention deficit hyperactivity disorder
  43. ZIPRASIDONE [Interacting]
     Active Substance: ZIPRASIDONE
     Indication: Sleep disorder
  44. ATOMOXETINE [Suspect]
     Active Substance: ATOMOXETINE
  45. AMPHETAMINE [Suspect]
     Active Substance: AMPHETAMINE
  46. CLONIDINE [Concomitant]
     Active Substance: CLONIDINE
  47. VALPROIC ACID [Concomitant]
     Active Substance: VALPROIC ACID
  48. CITALOPRAM [Concomitant]
     Active Substance: CITALOPRAM HYDROBROMIDE
  49. CARBAMAZEPINE [Concomitant]
     Active Substance: CARBAMAZEPINE
  50. OXCARBAZEPINE [Concomitant]
     Active Substance: OXCARBAZEPINE
  51. CLOBAZAM [Concomitant]
     Active Substance: CLOBAZAM
  52. GUANFACINE [Concomitant]
     Active Substance: GUANFACINE
  53. SERTRALINE [Concomitant]
     Active Substance: SERTRALINE HYDROCHLORIDE
  54. FLUVOXAMINE [Concomitant]
     Active Substance: FLUVOXAMINE
  55. LITHIUM [Concomitant]
     Active Substance: LITHIUM

REACTIONS (5)
  - Dystonia [Unknown]
  - Movement disorder [Unknown]
  - Drug interaction [Unknown]
  - Dyskinesia [Unknown]
  - Product dose omission issue [Unknown]
